FAERS Safety Report 24444440 (Version 2)
Quarter: 2024Q4

REPORT INFORMATION
  Report Type: Report from Study
  Country: ZA (occurrence: ZA)
  Receive Date: 20241016
  Receipt Date: 20241017
  Transmission Date: 20250115
  Serious: No
  Sender: ROCHE
  Company Number: ZA-ROCHE-2738297

PATIENT
  Sex: Female

DRUGS (1)
  1. MABTHERA [Suspect]
     Active Substance: RITUXIMAB
     Indication: Rheumatoid arthritis
     Dosage: REPEATED 6 MONTHLY? FREQUENCY TEXT:DAY 1 AND 15
     Route: 041
     Dates: start: 201711

REACTIONS (6)
  - Rheumatoid arthritis [Unknown]
  - C-reactive protein increased [Unknown]
  - Investigation abnormal [Unknown]
  - Immunoglobulins decreased [Unknown]
  - Rheumatoid arthritis [Unknown]
  - Off label use [Unknown]
